FAERS Safety Report 7527701-0 (Version None)
Quarter: 2011Q2

REPORT INFORMATION
  Report Type: 
  Country: None (occurrence: None)
  Receive Date: 20110607
  Receipt Date: 20110525
  Transmission Date: 20111010
  Serious: Yes (Other)
  Sender: FDA-Public Use
  Company Number: PHHY2011BR46526

PATIENT
  Sex: Female

DRUGS (1)
  1. RITALIN LA [Suspect]
     Dosage: 40 MG, UNK

REACTIONS (2)
  - ANTINUCLEAR ANTIBODY POSITIVE [None]
  - HAIR DISORDER [None]
